FAERS Safety Report 5890529-1 (Version None)
Quarter: 2008Q3

REPORT INFORMATION
  Report Type: 
  Country: None (occurrence: None)
  Receive Date: 20080922
  Receipt Date: 20080911
  Transmission Date: 20090109
  Serious: Yes (Other)
  Sender: FDA-Public Use
  Company Number: JP-WYE-H05994508

PATIENT
  Age: 15 Year
  Sex: Female

DRUGS (1)
  1. PREMARIN [Suspect]
     Indication: TURNER'S SYNDROME
     Dosage: UNKNOWN
     Route: 048
     Dates: start: 20030101, end: 20060101

REACTIONS (1)
  - LOSS OF CONSCIOUSNESS [None]
